FAERS Safety Report 8843267 (Version 1)
Quarter: 2012Q4

REPORT INFORMATION
  Report Type: 
  Country: FR (occurrence: FR)
  Receive Date: 20121016
  Receipt Date: 20121016
  Transmission Date: 20130627
  Serious: Yes (Other)
  Sender: FDA-Public Use
  Company Number: PHHY2012FR090957

PATIENT
  Sex: Female

DRUGS (11)
  1. RIAMET [Suspect]
     Indication: PLASMODIUM FALCIPARUM INFECTION
     Dosage: 4 DF, UNK
     Dates: start: 20120911
  2. RIAMET [Suspect]
     Dosage: 4 DF, UNK
     Dates: start: 20120914
  3. ARTESUNATE [Suspect]
     Indication: PLASMODIUM FALCIPARUM INFECTION
     Dosage: 96 mg, 2.4mg/kg
     Route: 042
     Dates: start: 20120911, end: 20120914
  4. PARACETAMOL [Concomitant]
     Indication: PYREXIA
     Dosage: 650 mg, QID
     Route: 042
     Dates: start: 20120911
  5. CEFOTAXIME [Concomitant]
     Indication: BACTERIAL INFECTION
     Dosage: 3 g, TID
     Route: 042
     Dates: start: 20120912
  6. SUFENTA [Concomitant]
     Indication: MEDICAL INDUCTION OF COMA
     Dosage: 250 ug, UNK
     Route: 042
     Dates: start: 20120912
  7. NORCURON [Concomitant]
     Indication: MEDICAL INDUCTION OF COMA
     Dosage: 100 mg, UNK
     Route: 042
     Dates: start: 20120912
  8. MIDAZOLAM [Concomitant]
     Indication: MEDICAL INDUCTION OF COMA
     Dosage: 120 ug, UNK
     Dates: start: 20120912
  9. EUPANTOL [Concomitant]
     Indication: GASTROINTESTINAL ULCER
     Dosage: 40 mg, UNK
     Route: 042
     Dates: start: 20120912
  10. LOVENOX [Concomitant]
     Indication: ARTERIAL THROMBOSIS
     Dosage: 2000 IU, BID
     Route: 058
     Dates: start: 20120913
  11. MALARONE [Concomitant]
     Indication: PLASMODIUM FALCIPARUM INFECTION
     Dosage: 4 DF, UNK
     Dates: start: 20120915, end: 20120917

REACTIONS (3)
  - Coma [Unknown]
  - Neurological decompensation [Unknown]
  - Electrocardiogram QT prolonged [Recovered/Resolved]
